FAERS Safety Report 6750177-8 (Version None)
Quarter: 2010Q2

REPORT INFORMATION
  Report Type: 
  Country: None (occurrence: None)
  Receive Date: 20100601
  Receipt Date: 20100521
  Transmission Date: 20101027
  Serious: Yes (Hospitalization, Other)
  Sender: FDA-Public Use
  Company Number: US-PFIZER INC-2010064498

PATIENT
  Sex: Male
  Weight: 100 kg

DRUGS (1)
  1. DEPO-TESTOSTERONE [Suspect]
     Indication: ANDROGEN DEFICIENCY
     Dosage: UNK

REACTIONS (3)
  - BACTERIAL INFECTION [None]
  - ERYTHEMA [None]
  - NODULE ON EXTREMITY [None]
